FAERS Safety Report 10284349 (Version 1)
Quarter: 2014Q3

REPORT INFORMATION
  Report Type: Spontaneous
  Country: JP (occurrence: None)
  Receive Date: 20140703
  Receipt Date: 20140703
  Transmission Date: 20150326
  Serious: Yes (Hospitalization)
  Sender: FDA-Public Use
  Company Number: B1006515A

PATIENT
  Sex: 0

DRUGS (1)
  1. PAROXETINE HYDROCHLORIDE. [Suspect]
     Active Substance: PAROXETINE HYDROCHLORIDE
     Indication: DEPRESSION
     Dosage: 50 MG/ PER DAY/ ORAL
     Route: 048

REACTIONS (4)
  - Alcohol use [None]
  - Suicide attempt [None]
  - Suicidal ideation [None]
  - Fall [None]
